FAERS Safety Report 16794614 (Version 1)
Quarter: 2019Q3

REPORT INFORMATION
  Report Type: Spontaneous
  Country: JP (occurrence: JP)
  Receive Date: 20190911
  Receipt Date: 20190911
  Transmission Date: 20191005
  Serious: Yes (Other)
  Sender: FDA-Public Use
  Company Number: JP-JNJFOC-20190908124

PATIENT
  Age: 65 Year
  Sex: Female

DRUGS (3)
  1. SIMPONI [Suspect]
     Active Substance: GOLIMUMAB
     Indication: RHEUMATOID ARTHRITIS
     Dosage: UNKNOWN,UPPER WRIST
     Route: 058
  2. SIMPONI [Suspect]
     Active Substance: GOLIMUMAB
     Dosage: UPPER WRIST
     Route: 058
     Dates: start: 20190829, end: 20190829
  3. SIMPONI [Suspect]
     Active Substance: GOLIMUMAB
     Dosage: UPPER WRIST
     Route: 058
     Dates: start: 20190802, end: 20190802

REACTIONS (3)
  - Injury associated with device [Unknown]
  - Needle issue [Unknown]
  - Injection site pain [Recovered/Resolved]

NARRATIVE: CASE EVENT DATE: 20190829
